FAERS Safety Report 6743045-9 (Version None)
Quarter: 2010Q2

REPORT INFORMATION
  Report Type: 
  Country: None (occurrence: None)
  Receive Date: 20100527
  Receipt Date: 20100517
  Transmission Date: 20101027
  Serious: Yes (Death)
  Sender: FDA-Public Use
  Company Number: US-ASTRAZENECA-2007UW11370

PATIENT
  Sex: Male

DRUGS (2)
  1. SEROQUEL [Suspect]
     Route: 048
     Dates: start: 20010115
  2. CLONAZEPAM [Concomitant]
     Route: 048
     Dates: start: 20010115

REACTIONS (2)
  - DEATH [None]
  - DIABETES MELLITUS [None]
